FAERS Safety Report 6390032-9 (Version None)
Quarter: 2009Q4

REPORT INFORMATION
  Report Type: 
  Country: None (occurrence: None)
  Receive Date: 20091006
  Receipt Date: 20090925
  Transmission Date: 20100525
  Serious: Yes (Hospitalization)
  Sender: FDA-Public Use
  Company Number: AU-NOVOPROD-292081

PATIENT
  Sex: Female

DRUGS (2)
  1. NOVORAPID [Suspect]
     Indication: GESTATIONAL DIABETES
     Dosage: UNK, TID
  2. PROTAPHANE [Suspect]
     Indication: GESTATIONAL DIABETES
     Dosage: UNK, QD

REACTIONS (2)
  - DIABETES MELLITUS INADEQUATE CONTROL [None]
  - INTRA-UTERINE DEATH [None]
